FAERS Safety Report 24064298 (Version 1)
Quarter: 2024Q3

REPORT INFORMATION
  Report Type: Spontaneous
  Country: US (occurrence: US)
  Receive Date: 20240709
  Receipt Date: 20240709
  Transmission Date: 20241017
  Serious: Yes (Hospitalization, Other)
  Sender: MYLAN
  Company Number: US-MYLANLABS-2024M1062584

PATIENT
  Age: 77 Year
  Sex: Female

DRUGS (7)
  1. FLUCONAZOLE [Suspect]
     Active Substance: FLUCONAZOLE
     Indication: Otitis externa
     Dosage: UNK
     Route: 065
  2. MEROPENEM [Suspect]
     Active Substance: MEROPENEM
     Indication: Otitis externa
     Dosage: UNK; 10 DAY COURSE
     Route: 065
  3. MEROPENEM [Suspect]
     Active Substance: MEROPENEM
     Dosage: UNK; THERAPY RE-INITIATED; DOSE NOT STATED
     Route: 065
  4. ISONIAZID [Suspect]
     Active Substance: ISONIAZID
     Indication: Latent tuberculosis
     Dosage: UNK; INITIAL DOSE BEFORE SKIN GRAFT NOT STATED
     Route: 065
  5. ISONIAZID [Suspect]
     Active Substance: ISONIAZID
     Dosage: UNK; DOSE RESUMED AFTER SKIN GRAFT
     Route: 065
  6. PREDNISONE [Concomitant]
     Active Substance: PREDNISONE
     Indication: Adrenocortical steroid therapy
     Dosage: UNK; INITIAL DOSE NOT STATED
     Route: 065
  7. PREDNISONE [Concomitant]
     Active Substance: PREDNISONE
     Dosage: UNK; DOSE TAPERED
     Route: 065

REACTIONS (3)
  - Multiple drug hypersensitivity [Recovering/Resolving]
  - Linear IgA disease [Recovering/Resolving]
  - Candida infection [Recovering/Resolving]
